FAERS Safety Report 4580098-0 (Version None)
Quarter: 2005Q1

REPORT INFORMATION
  Report Type: 
  Country: None (occurrence: None)
  Receive Date: 20050214
  Receipt Date: 20050204
  Transmission Date: 20050727
  Serious: Yes (Hospitalization, Disabling)
  Sender: FDA-Public Use
  Company Number: NO-MERCK-0502NOR00022

PATIENT
  Sex: Female

DRUGS (1)
  1. VIOXX [Suspect]
     Indication: ARTHRALGIA
     Route: 048
     Dates: start: 20001030, end: 20010201

REACTIONS (1)
  - CEREBRAL INFARCTION [None]
